FAERS Safety Report 17218910 (Version 1)
Quarter: 2019Q4

REPORT INFORMATION
  Report Type: Spontaneous
  Country: UA (occurrence: UA)
  Receive Date: 20191231
  Receipt Date: 20191231
  Transmission Date: 20200122
  Serious: Yes (Other)
  Sender: FDA-Public Use
  Company Number: NVSC2019UA081322

PATIENT
  Age: 5 Year
  Sex: Male

DRUGS (6)
  1. MEROPENEM. [Suspect]
     Active Substance: MEROPENEM
     Indication: TUBERCULOSIS
     Dosage: 500 MG, BID
     Route: 042
     Dates: start: 20190707
  2. AMOXICILINA CLAV [Suspect]
     Active Substance: AMOXICILLIN\CLAVULANATE POTASSIUM
     Indication: TUBERCULOSIS
     Dosage: 625 MG, BID
     Route: 065
  3. DELTYBA [Suspect]
     Active Substance: DELAMANID
     Indication: PULMONARY TUBERCULOSIS
     Dosage: 25 MG, BID (50 MG TABLET)
     Route: 065
     Dates: start: 20190701
  4. BEDAQUILINE [Suspect]
     Active Substance: BEDAQUILINE
     Dosage: 100 MG, TIW
     Route: 065
  5. CLOFAZIMINE [Suspect]
     Active Substance: CLOFAZIMINE
     Indication: TUBERCULOSIS
     Dosage: 100 MG, QOD
     Route: 065
     Dates: start: 20190707
  6. BEDAQUILINE [Suspect]
     Active Substance: BEDAQUILINE
     Indication: TUBERCULOSIS
     Dosage: 200 MG
     Route: 065
     Dates: start: 20190701

REACTIONS (10)
  - Dyskinesia [Unknown]
  - Product use issue [Unknown]
  - Screaming [Unknown]
  - Anxiety [Unknown]
  - Aggression [Unknown]
  - Irritability [Unknown]
  - Hallucination [Recovered/Resolved]
  - Crying [Unknown]
  - Wrong technique in product usage process [Unknown]
  - Underdose [Unknown]

NARRATIVE: CASE EVENT DATE: 20190707
